FAERS Safety Report 23690023 (Version 1)
Quarter: 2024Q2

REPORT INFORMATION
  Report Type: Report from Study
  Country: CH (occurrence: CH)
  Receive Date: 20240401
  Receipt Date: 20240401
  Transmission Date: 20240716
  Serious: Yes (Hospitalization)
  Sender: FDA-Public Use
  Company Number: CH-ABBVIE-22K-151-4264633-00

PATIENT
  Sex: Female
  Weight: 43 kg

DRUGS (7)
  1. CARBIDOPA\LEVODOPA [Suspect]
     Active Substance: CARBIDOPA\LEVODOPA
     Indication: Parkinson^s disease
     Dosage: MD: 6.0 ML, CRD: 2.3 ML/H, CRN: 0 ML/H, ED: 2.0 ML/ 16H THERAPY
     Route: 050
     Dates: start: 20220127, end: 202202
  2. CARBIDOPA\LEVODOPA [Suspect]
     Active Substance: CARBIDOPA\LEVODOPA
     Dosage: MD: 6.0 ML, CRD: 2.4 ML/H, CRN: 0 ML/H, ED: 2.0 ML
     Route: 050
     Dates: start: 20220214, end: 20220714
  3. CARBIDOPA\LEVODOPA [Suspect]
     Active Substance: CARBIDOPA\LEVODOPA
     Dosage: MD: 5.5ML, CRD: 2.2 ML/H, CRN: 0 ML/H, ED: 2.0 ML?16H THERAPY
     Route: 050
     Dates: start: 20220714, end: 202211
  4. CARBIDOPA\LEVODOPA [Suspect]
     Active Substance: CARBIDOPA\LEVODOPA
     Dosage: MD: 5.5ML, CRD: 2.0 ML/H, CRN: 0 ML/H, ED: 2.0 ML?LOT NUMBER 23D04G12
     Route: 050
     Dates: start: 20221108, end: 202308
  5. CARBIDOPA\LEVODOPA [Suspect]
     Active Substance: CARBIDOPA\LEVODOPA
     Dosage: MD: 5.5ML, CRD: 1.9 ML/H, CRN: 0 ML/H, ED: 2.0 ML
     Route: 050
     Dates: start: 20230829, end: 202403
  6. CARBIDOPA\LEVODOPA [Suspect]
     Active Substance: CARBIDOPA\LEVODOPA
     Dosage: MD: 5.5ML, CRD: 1.7 ML/H, CRN: 0 ML/H, ED: 2.00 ML?16H THERAPY
     Route: 050
     Dates: start: 20240326
  7. CARBIDOPA\LEVODOPA [Suspect]
     Active Substance: CARBIDOPA\LEVODOPA
     Dosage: 16H THERAPY
     Route: 050
     Dates: start: 20180430

REACTIONS (27)
  - Femoral neck fracture [Unknown]
  - Device issue [Recovered/Resolved]
  - Emotional disorder [Not Recovered/Not Resolved]
  - Dysgraphia [Unknown]
  - Psychiatric symptom [Not Recovered/Not Resolved]
  - Stoma site discharge [Recovering/Resolving]
  - Gait disturbance [Not Recovered/Not Resolved]
  - Stoma site erythema [Recovering/Resolving]
  - Dyskinesia [Not Recovered/Not Resolved]
  - Akinesia [Not Recovered/Not Resolved]
  - Asthenia [Not Recovered/Not Resolved]
  - Dyskinesia [Not Recovered/Not Resolved]
  - Pain in extremity [Recovered/Resolved]
  - On and off phenomenon [Unknown]
  - Gait inability [Recovered/Resolved]
  - Weight decreased [Recovered/Resolved]
  - Joint swelling [Not Recovered/Not Resolved]
  - Fall [Unknown]
  - Memory impairment [Not Recovered/Not Resolved]
  - Freezing phenomenon [Not Recovered/Not Resolved]
  - Treatment noncompliance [Not Recovered/Not Resolved]
  - General physical health deterioration [Not Recovered/Not Resolved]
  - Headache [Not Recovered/Not Resolved]
  - Tremor [Not Recovered/Not Resolved]
  - Therapeutic product effect variable [Unknown]
  - Walking aid user [Not Recovered/Not Resolved]
  - Gait inability [Recovered/Resolved]

NARRATIVE: CASE EVENT DATE: 20220101
